FAERS Safety Report 9548202 (Version 2)
Quarter: 2013Q3

REPORT INFORMATION
  Report Type: Spontaneous
  Country: JP (occurrence: JP)
  Receive Date: 20130924
  Receipt Date: 20130924
  Transmission Date: 20140515
  Serious: Yes (Hospitalization)
  Sender: FDA-Public Use
  Company Number: JP-PFIZER INC-2013244149

PATIENT
  Age: 73 Year
  Sex: Male
  Weight: 63 kg

DRUGS (4)
  1. INLYTA [Suspect]
     Dosage: 10 MG, UNK
     Route: 048
     Dates: start: 20130517, end: 20130820
  2. MAGMITT [Concomitant]
     Indication: CONSTIPATION
     Dosage: 330 MG, 3X/DAY
     Route: 048
     Dates: start: 20120702
  3. RISPERDAL [Concomitant]
     Indication: SCHIZOPHRENIA
     Dosage: 2 MG, 2X/DAY
     Route: 048
     Dates: start: 20120627
  4. MS CONTIN [Concomitant]
     Indication: CANCER PAIN
     Dosage: 20 MG, 2X/DAY
     Route: 048
     Dates: start: 20120820

REACTIONS (3)
  - Palmar-plantar erythrodysaesthesia syndrome [Recovered/Resolved]
  - Generalised oedema [Recovering/Resolving]
  - Decreased appetite [Recovered/Resolved]
